FAERS Safety Report 7470034-1 (Version None)
Quarter: 2011Q2

REPORT INFORMATION
  Report Type: 
  Country: None (occurrence: None)
  Receive Date: 20110429
  Receipt Date: 20110420
  Transmission Date: 20111010
  Serious: Yes (Other)
  Sender: FDA-Public Use
  Company Number: GGEL20110400580

PATIENT
  Age: 27 Year
  Sex: Female

DRUGS (7)
  1. LEVETIRACETAM [Suspect]
     Indication: CONVULSION
  2. TOPIRAMATE [Suspect]
     Indication: CONVULSION
     Dosage: ORAL USE
     Route: 048
  3. ZONISAMIDE [Suspect]
     Indication: CONVULSION
     Dosage: 200 MILLIGRAM, 2 IN 1 D
  4. LAMOTRIGINE [Suspect]
     Indication: CONVULSION
  5. TIAGABINE HCL [Suspect]
     Indication: CONVULSION
  6. PHENYTOIN [Suspect]
     Indication: CONVULSION
  7. CARBAMAZEPINE [Suspect]
     Indication: CONVULSION

REACTIONS (4)
  - COMPLEX PARTIAL SEIZURES [None]
  - SPEECH DISORDER [None]
  - AMNESIA [None]
  - ENCEPHALOCELE [None]
